FAERS Safety Report 6674338-1 (Version None)
Quarter: 2010Q2

REPORT INFORMATION
  Report Type: 
  Country: None (occurrence: None)
  Receive Date: 20100409
  Receipt Date: 20100331
  Transmission Date: 20101027
  Serious: Yes (Other)
  Sender: FDA-Public Use
  Company Number: JP-JNJFOC-20100305679

PATIENT
  Age: 73 Year
  Sex: Female

DRUGS (14)
  1. RISPERIDONE [Suspect]
     Indication: SCHIZOPHRENIA
     Route: 048
  2. UNKNOWN MEDICATION [Suspect]
     Indication: DRUG USE FOR UNKNOWN INDICATION
     Route: 065
  3. GLYSENNID [Concomitant]
     Route: 048
  4. ROHYPNOL [Concomitant]
     Route: 048
  5. LENDORMIN [Concomitant]
     Route: 048
  6. TETRAMIDE [Concomitant]
     Route: 048
  7. ADALAT [Concomitant]
     Route: 048
  8. RENIVACE [Concomitant]
     Route: 048
  9. OMEPRAZOLE [Concomitant]
     Route: 048
  10. FERROUS CITRATE [Concomitant]
     Route: 048
  11. FERROMIA [Concomitant]
     Route: 048
  12. THEO-DUR [Concomitant]
     Route: 048
  13. MUCODYNE [Concomitant]
     Route: 048
  14. MUCOSOLVAN [Concomitant]
     Route: 048

REACTIONS (1)
  - BRONCHOLITHIASIS [None]
